FAERS Safety Report 18554879 (Version 1)
Quarter: 2020Q4

REPORT INFORMATION
  Report Type: Report from Study
  Country: US (occurrence: US)
  Receive Date: 20201127
  Receipt Date: 20201127
  Transmission Date: 20210114
  Serious: Yes (Disabling)
  Sender: FDA-Public Use
  Company Number: US-JNJFOC-20201113116

PATIENT
  Age: 67 Year
  Sex: Female
  Weight: 142.1 kg

DRUGS (5)
  1. UPTRAVI [Suspect]
     Active Substance: SELEXIPAG
     Indication: PULMONARY ARTERIAL HYPERTENSION
     Route: 048
     Dates: start: 20201026
  2. UPTRAVI [Suspect]
     Active Substance: SELEXIPAG
     Route: 048
  3. TADALAFIL. [Concomitant]
     Active Substance: TADALAFIL
  4. UPTRAVI [Suspect]
     Active Substance: SELEXIPAG
     Route: 048
     Dates: start: 202010
  5. BOSENTAN. [Concomitant]
     Active Substance: BOSENTAN

REACTIONS (7)
  - Chest pain [Unknown]
  - Feeling hot [Unknown]
  - Renal disorder [Unknown]
  - Oedema [Unknown]
  - Weight decreased [Unknown]
  - Dyspnoea [Recovering/Resolving]
  - Headache [Recovering/Resolving]

NARRATIVE: CASE EVENT DATE: 202010
